FAERS Safety Report 9056011 (Version 2)
Quarter: 2013Q2

REPORT INFORMATION
  Report Type: Spontaneous
  Country: US (occurrence: US)
  Receive Date: 20130205
  Receipt Date: 20130517
  Transmission Date: 20140414
  Serious: Yes (Death, Other)
  Sender: FDA-Public Use
  Company Number: US-JNJFOC-20130200290

PATIENT
  Sex: 0

DRUGS (5)
  1. DOXORUBICIN [Suspect]
     Indication: TRANSITIONAL CELL CARCINOMA
     Dosage: ON DAY 3
     Route: 042
  2. IFOSFAMIDE [Suspect]
     Indication: TRANSITIONAL CELL CARCINOMA
     Route: 065
  3. MESNA [Suspect]
     Indication: TRANSITIONAL CELL CARCINOMA
     Dosage: INFUSED OVER 15 MINUTES AT HOURS ZERO, 3, 7 AND 11 ON DAYS 1 THROUGH
     Route: 065
  4. GEMCITABINE [Suspect]
     Indication: TRANSITIONAL CELL CARCINOMA
     Dosage: ON DAYS 2 TO 4
     Route: 065
  5. SODIUM ACETATE [Concomitant]
     Indication: FLUID REPLACEMENT
     Dosage: FREQUENT INFUSION
     Route: 065

REACTIONS (3)
  - Pneumonia [Fatal]
  - Neutropenia [Unknown]
  - Off label use [Unknown]
